FAERS Safety Report 4430490-X (Version None)
Quarter: 2004Q3

REPORT INFORMATION
  Report Type: 
  Country: None (occurrence: None)
  Receive Date: 20040721
  Receipt Date: 20031219
  Transmission Date: 20050211
  Serious: Yes (Life-Threatening)
  Sender: FDA-Public Use
  Company Number: WAES0312USA02239

PATIENT
  Age: 61 Year
  Sex: Male

DRUGS (3)
  1. VIOXX [Suspect]
     Indication: OSTEOARTHRITIS
     Dosage: 25 MG/DAILY/PO
     Route: 048
     Dates: start: 20031121, end: 20031216
  2. CORGARD [Concomitant]
  3. LIPITOR [Concomitant]

REACTIONS (1)
  - BLOOD PRESSURE INCREASED [None]
